FAERS Safety Report 7366750-2 (Version None)
Quarter: 2011Q1

REPORT INFORMATION
  Report Type: 
  Country: None (occurrence: None)
  Receive Date: 20110322
  Receipt Date: 20110315
  Transmission Date: 20110831
  Serious: No
  Sender: FDA-Public Use
  Company Number: JP-ROCHE-758242

PATIENT
  Sex: Male

DRUGS (7)
  1. ZOMETA [Suspect]
     Indication: LUNG ADENOCARCINOMA METASTATIC
     Route: 041
     Dates: start: 20100712, end: 20101117
  2. GASTER [Concomitant]
     Route: 042
     Dates: start: 20100720, end: 20101119
  3. GRANISETRON HCL [Concomitant]
     Route: 042
     Dates: start: 20100720, end: 20101119
  4. AVASTIN [Suspect]
     Indication: LUNG ADENOCARCINOMA METASTATIC
     Route: 042
     Dates: start: 20100720, end: 20101119
  5. DECADRON [Concomitant]
     Route: 065
     Dates: start: 20100720, end: 20101119
  6. CARBOPLATIN [Concomitant]
     Dosage: DOSAGE IS UNCERTAIN
     Route: 041
     Dates: start: 20100720, end: 20101119
  7. PACLITAXEL [Concomitant]
     Dosage: DOSAGE IS UNCERTAIN
     Route: 041
     Dates: start: 20100720, end: 20101119

REACTIONS (1)
  - OSTEONECROSIS OF JAW [None]
